FAERS Safety Report 7539852-5 (Version None)
Quarter: 2011Q2

REPORT INFORMATION
  Report Type: 
  Country: None (occurrence: None)
  Receive Date: 20110610
  Receipt Date: 20110603
  Transmission Date: 20111010
  Serious: Yes (Other)
  Sender: FDA-Public Use
  Company Number: AR-MEDIMMUNE-MEDI-0013233

PATIENT
  Sex: Female
  Weight: 1.248 kg

DRUGS (7)
  1. FERROUS SULFATE TAB [Concomitant]
     Route: 048
     Dates: start: 20110407, end: 20110519
  2. VITAMIN A [Concomitant]
     Dates: start: 20110318, end: 20110519
  3. ASCORBIC ACID [Concomitant]
     Dates: start: 20110318, end: 20110519
  4. CAFEIN [Concomitant]
     Route: 048
     Dates: start: 20110317, end: 20110414
  5. CAFEIN [Concomitant]
     Route: 048
     Dates: start: 20110317, end: 20110414
  6. SYNAGIS [Suspect]
     Route: 030
     Dates: start: 20110412, end: 20110516
  7. VITAMIN D [Concomitant]
     Dates: start: 20110318, end: 20110519

REACTIONS (3)
  - MEDIASTINAL MASS [None]
  - OBSTRUCTIVE AIRWAYS DISORDER [None]
  - OXYGEN SATURATION DECREASED [None]
